FAERS Safety Report 5168330-6 (Version None)
Quarter: 2006Q4

REPORT INFORMATION
  Report Type: 
  Country: None (occurrence: None)
  Receive Date: 20061208
  Receipt Date: 20061129
  Transmission Date: 20070319
  Serious: Yes (Other)
  Sender: FDA-Public Use
  Company Number: TT-JNJFOC-20061200430

PATIENT
  Age: 38 Year
  Sex: Male
  Weight: 83 kg

DRUGS (3)
  1. ELEQUINE [Suspect]
     Indication: BRONCHITIS ACUTE
     Route: 048
     Dates: start: 20061109, end: 20061111
  2. NEXIUM [Concomitant]
     Indication: GASTRITIS
     Route: 048
     Dates: start: 20061109, end: 20061111
  3. ACETAMINOPHEN [Concomitant]
     Indication: PAIN
     Route: 048
     Dates: start: 20061109, end: 20061111

REACTIONS (6)
  - ASTHENIA [None]
  - DEAFNESS [None]
  - DYSGEUSIA [None]
  - MYALGIA [None]
  - PAROSMIA [None]
  - TINNITUS [None]
